FAERS Safety Report 9435277 (Version 1)
Quarter: 2013Q3

REPORT INFORMATION
  Report Type: Spontaneous
  Country: US (occurrence: US)
  Receive Date: 20130801
  Receipt Date: 20130801
  Transmission Date: 20140515
  Serious: No
  Sender: FDA-Public Use
  Company Number: US-BAUSCH-BL-2013-003488

PATIENT
  Age: 64 Year
  Sex: Male

DRUGS (5)
  1. DORZOLAMIDE HYDROCHLORIDE AND TIMOLOL MALEATE OPHTHALMIC SOLUTION 2%/0 [Suspect]
     Indication: GLAUCOMA
     Dosage: 1 DROP IN RIGHT EYE; TWICE DAILY; OPHTHALMIC
     Route: 047
     Dates: start: 201211, end: 20130530
  2. ASPIRIN [Concomitant]
  3. GLIPIZIDE [Concomitant]
     Indication: DIABETES MELLITUS
  4. HYDROCHLOROTHIAZIDE/ENALAPRIL MALEATE [Concomitant]
     Indication: HYPERTENSION
  5. XALATAN [Concomitant]
     Indication: GLAUCOMA

REACTIONS (1)
  - Eye irritation [Unknown]
